FAERS Safety Report 6661445-2 (Version None)
Quarter: 2010Q1

REPORT INFORMATION
  Report Type: 
  Country: None (occurrence: None)
  Receive Date: 20100331
  Receipt Date: 20100323
  Transmission Date: 20100710
  Serious: Yes (Death, Hospitalization, Other)
  Sender: FDA-Public Use
  Company Number: US-MERCK-0905USA00171

PATIENT
  Age: 82 Year
  Sex: Female
  Weight: 54 kg

DRUGS (4)
  1. FOSAMAX [Suspect]
     Indication: OSTEOPOROSIS
     Route: 048
     Dates: start: 20030801, end: 20080101
  2. LORAZEPAM [Concomitant]
     Indication: ANXIETY
     Route: 065
     Dates: start: 20020101
  3. COUMADIN [Concomitant]
     Indication: THROMBOPHLEBITIS
     Route: 065
     Dates: start: 20030101
  4. LEXAPRO [Concomitant]
     Indication: DEPRESSION
     Route: 065
     Dates: start: 20030101

REACTIONS (59)
  - ADVERSE DRUG REACTION [None]
  - ATRIAL FIBRILLATION [None]
  - BONE SARCOMA [None]
  - BRONCHITIS [None]
  - BRONCHOSPASM [None]
  - BURSITIS [None]
  - CANDIDIASIS [None]
  - CARDIAC FAILURE CONGESTIVE [None]
  - CELLULITIS [None]
  - CHEST PAIN [None]
  - CHOLECYSTITIS CHRONIC [None]
  - CHRONIC OBSTRUCTIVE PULMONARY DISEASE [None]
  - CLOSTRIDIUM DIFFICILE COLITIS [None]
  - COLITIS [None]
  - CONSTIPATION [None]
  - DEATH [None]
  - DEHYDRATION [None]
  - DELIRIUM [None]
  - DEMENTIA ALZHEIMER'S TYPE [None]
  - DENTAL CARIES [None]
  - DIABETES MELLITUS [None]
  - DIZZINESS [None]
  - DRUG ABUSE [None]
  - DYSPNOEA [None]
  - ENTHESOPATHY [None]
  - FALL [None]
  - FATIGUE [None]
  - FLUID RETENTION [None]
  - GASTROOESOPHAGEAL REFLUX DISEASE [None]
  - HEADACHE [None]
  - HERPES ZOSTER [None]
  - INCONTINENCE [None]
  - INFLUENZA [None]
  - INTERVERTEBRAL DISC PROTRUSION [None]
  - LUMBAR VERTEBRAL FRACTURE [None]
  - MACULAR DEGENERATION [None]
  - MALAISE [None]
  - MASS [None]
  - NERVE ROOT LESION [None]
  - OEDEMA [None]
  - OPEN WOUND [None]
  - OSTEOMYELITIS [None]
  - OSTEONECROSIS [None]
  - PAIN [None]
  - PNEUMONIA [None]
  - PNEUMONITIS [None]
  - POLYMYALGIA RHEUMATICA [None]
  - RADICULOPATHY [None]
  - RESPIRATORY DISTRESS [None]
  - RESTLESS LEGS SYNDROME [None]
  - SCIATICA [None]
  - SEPSIS SYNDROME [None]
  - SLEEP DISORDER [None]
  - SPINAL DISORDER [None]
  - SPONDYLOLISTHESIS [None]
  - SQUAMOUS CELL CARCINOMA [None]
  - TEMPOROMANDIBULAR JOINT SYNDROME [None]
  - TOOTHACHE [None]
  - URINARY TRACT INFECTION [None]
